FAERS Safety Report 11857050 (Version 1)
Quarter: 2015Q4

REPORT INFORMATION
  Report Type: Report from Study
  Country: US (occurrence: US)
  Receive Date: 20151221
  Receipt Date: 20151221
  Transmission Date: 20160305
  Serious: Yes (Hospitalization, Other)
  Sender: FDA-Public Use
  Company Number: US-JNJFOC-20150910835

PATIENT
  Age: 67 Year
  Sex: Female
  Weight: 107 kg

DRUGS (25)
  1. BENAZEPRIL [Concomitant]
     Active Substance: BENAZEPRIL HYDROCHLORIDE
  2. DOCUSATE SODIUM. [Concomitant]
     Active Substance: DOCUSATE SODIUM
  3. MULTIVITAMINS [Concomitant]
     Active Substance: VITAMINS
     Route: 048
  4. BACTRIM [Concomitant]
     Active Substance: SULFAMETHOXAZOLE\TRIMETHOPRIM
  5. FISH OIL [Concomitant]
     Active Substance: FISH OIL
  6. POTASSIUM CHLORIDE. [Concomitant]
     Active Substance: POTASSIUM CHLORIDE
     Route: 048
  7. LASIX [Concomitant]
     Active Substance: FUROSEMIDE
     Route: 048
  8. PREDNISONE. [Concomitant]
     Active Substance: PREDNISONE
  9. OMEGA  3 FISH OILS [Concomitant]
     Active Substance: OMEGA-3 FATTY ACIDS
     Route: 048
  10. FLAXSEED [Concomitant]
     Active Substance: FLAX SEED
  11. LUTEIN [Concomitant]
     Active Substance: LUTEIN
  12. ASPIRIN. [Concomitant]
     Active Substance: ASPIRIN
     Route: 048
  13. IMBRUVICA [Suspect]
     Active Substance: IBRUTINIB
     Indication: CHRONIC LYMPHOCYTIC LEUKAEMIA
     Route: 048
     Dates: start: 20131222, end: 201407
  14. GLUCOSAMINE [Concomitant]
     Active Substance: GLUCOSAMINE
     Dosage: 1 UNIT IN A DAY
     Route: 048
  15. CYANOCOBALAMINE [Concomitant]
     Active Substance: CYANOCOBALAMIN
     Route: 048
  16. GABAPENTIN. [Concomitant]
     Active Substance: GABAPENTIN
     Route: 048
  17. IMBRUVICA [Suspect]
     Active Substance: IBRUTINIB
     Indication: CHRONIC LYMPHOCYTIC LEUKAEMIA
     Route: 048
     Dates: start: 2015, end: 201506
  18. TOCOPHEROL [Concomitant]
     Active Substance: TOCOPHEROL
  19. D3 [Concomitant]
     Active Substance: 25-HYDROXYCHOLECALCIFEROL, 5-TRANS-
     Dosage: 2000 UNITS ONCE IN A DAY
     Route: 048
  20. LULICONAZOLE [Concomitant]
     Active Substance: LULICONAZOLE
  21. IMBRUVICA [Suspect]
     Active Substance: IBRUTINIB
     Indication: CHRONIC LYMPHOCYTIC LEUKAEMIA
     Route: 048
     Dates: end: 201505
  22. IMBRUVICA [Suspect]
     Active Substance: IBRUTINIB
     Indication: CHRONIC LYMPHOCYTIC LEUKAEMIA
     Route: 048
     Dates: start: 2015
  23. RESTASIS [Concomitant]
     Active Substance: CYCLOSPORINE
     Dosage: BOTH EYES, 1 DROP
     Route: 047
  24. SIMVASTATIN. [Concomitant]
     Active Substance: SIMVASTATIN
  25. COQ10 [Concomitant]
     Active Substance: UBIDECARENONE
     Route: 048

REACTIONS (13)
  - Sepsis [Recovered/Resolved]
  - Carpal tunnel syndrome [Not Recovered/Not Resolved]
  - Hypoaesthesia [Recovering/Resolving]
  - Arteriosclerosis coronary artery [Unknown]
  - Bladder disorder [Recovered/Resolved]
  - Animal bite [Recovered/Resolved]
  - Haemarthrosis [Unknown]
  - Basosquamous carcinoma [Recovered/Resolved]
  - Fall [Unknown]
  - Nail growth abnormal [Recovering/Resolving]
  - Muscle spasms [Not Recovered/Not Resolved]
  - Contusion [Recovering/Resolving]
  - Haematoma [Recovered/Resolved]

NARRATIVE: CASE EVENT DATE: 2014
